FAERS Safety Report 10062675 (Version 1)
Quarter: 2014Q1

REPORT INFORMATION
  Report Type: Spontaneous
  Country: US (occurrence: None)
  Receive Date: 20140313
  Receipt Date: 20140313
  Transmission Date: 20141002
  Serious: No
  Sender: FDA-Public Use
  Company Number: 1000050564

PATIENT
  Age: 78 Year
  Sex: Female

DRUGS (1)
  1. DALIRESP [Suspect]

REACTIONS (2)
  - Dizziness [None]
  - Palpitations [None]
